FAERS Safety Report 8917552 (Version 2)
Quarter: 2012Q4

REPORT INFORMATION
  Report Type: Report from Study
  Country: FR (occurrence: FR)
  Receive Date: 20121120
  Receipt Date: 20121127
  Transmission Date: 20130627
  Serious: Yes (Other)
  Sender: FDA-Public Use
  Company Number: FR-GENZYME-MOZO-1000778

PATIENT
  Age: 50 None
  Sex: Male
  Weight: 80 kg

DRUGS (5)
  1. MOZOBIL [Suspect]
     Indication: ACUTE MYELOID LEUKAEMIA RECURRENT
     Dosage: 240 mcg/kg, qd, D1-D3,D8-D10
     Route: 042
     Dates: start: 20120924, end: 20121003
  2. GRANOCYTE [Suspect]
     Indication: ACUTE MYELOID LEUKAEMIA RECURRENT
     Dosage: 5 mcg/kg, qd, D1-D10
     Route: 042
     Dates: start: 20120924, end: 20121003
  3. DAUNORUBICIN [Suspect]
     Indication: PRODUCT USED FOR UNKNOWN INDICATION
     Dosage: 60 mg/m2, qd (D1-D3)
     Route: 042
     Dates: start: 20120924, end: 20120926
  4. ARACYTINE [Suspect]
     Indication: PRODUCT USED FOR UNKNOWN INDICATION
     Dosage: 500 mg/m2, qd, D1-D3
     Route: 042
     Dates: start: 20120924
  5. ARACYTINE [Suspect]
     Dosage: 1000 mg/m2, qd, D8-D10
     Route: 042
     Dates: end: 20121003

REACTIONS (9)
  - Bronchopulmonary aspergillosis [Not Recovered/Not Resolved]
  - Febrile bone marrow aplasia [Not Recovered/Not Resolved]
  - Spleen disorder [Unknown]
  - Pulmonary haemorrhage [Unknown]
  - Pericardial effusion [Unknown]
  - Pneumonia [Unknown]
  - Hepatic mass [Unknown]
  - Rash [Unknown]
  - Myalgia [Unknown]
